FAERS Safety Report 6240509-1 (Version None)
Quarter: 2009Q2

REPORT INFORMATION
  Report Type: 
  Country: None (occurrence: None)
  Receive Date: 20090623
  Receipt Date: 20090407
  Transmission Date: 20091009
  Serious: No
  Sender: FDA-Public Use
  Company Number: US-ASTRAZENECA-2009UW08732

PATIENT
  Age: 40 Year
  Sex: Female
  Weight: 65.8 kg

DRUGS (4)
  1. PULMICORT RESPULES [Suspect]
     Indication: CHRONIC SINUSITIS
     Route: 055
  2. TOPAMAX [Concomitant]
  3. ORTHO TRI-CYCLEN [Concomitant]
  4. ACIPHEX [Concomitant]

REACTIONS (1)
  - EYE IRRITATION [None]
